FAERS Safety Report 7475886-7 (Version None)
Quarter: 2011Q2

REPORT INFORMATION
  Report Type: 
  Country: None (occurrence: None)
  Receive Date: 20110512
  Receipt Date: 20110509
  Transmission Date: 20111010
  Serious: Yes (Death)
  Sender: FDA-Public Use
  Company Number: US-AMGEN-USASP2011023185

PATIENT
  Sex: Male

DRUGS (2)
  1. CORTICOSTEROIDS [Concomitant]
     Dosage: UNK
     Dates: start: 20050613
  2. NPLATE [Suspect]
     Indication: IDIOPATHIC THROMBOCYTOPENIC PURPURA
     Dosage: 340 A?G, UNK
     Dates: start: 20100429, end: 20101209

REACTIONS (1)
  - CARDIAC FAILURE CONGESTIVE [None]
